FAERS Safety Report 9681585 (Version 5)
Quarter: 2013Q4

REPORT INFORMATION
  Report Type: Spontaneous
  Country: FR (occurrence: FR)
  Receive Date: 20131111
  Receipt Date: 20131210
  Transmission Date: 20140711
  Serious: Yes (Hospitalization)
  Sender: FDA-Public Use
  Company Number: FR-PFIZER INC-2013318242

PATIENT
  Age: 55 Year
  Sex: Male

DRUGS (13)
  1. TRIATEC [Suspect]
     Dosage: 2.5 MG, DAILY
     Route: 048
     Dates: start: 20130411, end: 20131010
  2. EUPANTOL [Suspect]
     Dosage: 20 MG, 2X/DAY
     Route: 048
     Dates: start: 20130610
  3. CORDARONE [Suspect]
     Dosage: 200 MG, 1X/DAY
     Route: 048
     Dates: start: 20130723
  4. OFLOCET [Suspect]
     Indication: BACTERIAL INFECTION
     Dosage: 200 MG, 1X/DAY
     Route: 048
     Dates: start: 20130926, end: 20131003
  5. PENTACARINAT [Suspect]
     Dosage: 1 DF, WEEKLY
     Route: 055
     Dates: start: 20130605
  6. LASILIX [Suspect]
     Dosage: 1.75 DF, 1X/DAY
     Route: 048
     Dates: start: 20130525
  7. LASILIX [Suspect]
     Dosage: UNK
     Route: 048
     Dates: start: 20130610
  8. CALCIPARINE [Suspect]
     Dosage: 0.5 ML, EVERY 3 WEEKS
     Route: 058
     Dates: start: 20130926
  9. MYFORTIC [Suspect]
     Indication: PROPHYLAXIS AGAINST TRANSPLANT REJECTION
     Dosage: 360 MG, 2X/DAY
     Route: 048
     Dates: start: 20130723, end: 20131003
  10. PREVISCAN [Suspect]
     Dosage: 15 MG, 1X/DAY
     Route: 048
     Dates: start: 20131001
  11. SERETIDE DISKUS [Suspect]
     Dosage: 500/50 MCG, 2X/DAY
     Route: 055
     Dates: start: 20130610
  12. LOPRESSOR [Suspect]
     Dosage: 100 MG, 2X/DAY
     Route: 048
  13. NEORAL [Suspect]
     Dosage: 120 MG, 1X/DAY
     Route: 048
     Dates: start: 20130723

REACTIONS (4)
  - Subcutaneous haematoma [Recovered/Resolved]
  - Thrombocytopenia [Recovered/Resolved]
  - Blood blister [Recovered/Resolved]
  - Thrombocytopenic purpura [Recovered/Resolved]
